FAERS Safety Report 14859844 (Version 1)
Quarter: 2018Q2

REPORT INFORMATION
  Report Type: Spontaneous
  Country: US (occurrence: US)
  Receive Date: 20180508
  Receipt Date: 20180508
  Transmission Date: 20180711
  Serious: No
  Sender: FDA-Public Use
  Company Number: PHHY2018US076701

PATIENT
  Sex: Female

DRUGS (1)
  1. BETADINE [Suspect]
     Active Substance: POVIDONE-IODINE
     Indication: PRODUCT USED FOR UNKNOWN INDICATION
     Route: 047

REACTIONS (4)
  - Visual impairment [Unknown]
  - Eye pain [Unknown]
  - Headache [Unknown]
  - Ocular hyperaemia [Unknown]
